FAERS Safety Report 8939945 (Version 2)
Quarter: 2013Q1

REPORT INFORMATION
  Report Type: Spontaneous
  Country: US (occurrence: US)
  Receive Date: 20121203
  Receipt Date: 20130117
  Transmission Date: 20140127
  Serious: No
  Sender: FDA-Public Use
  Company Number: US-PFIZER INC-2012302211

PATIENT
  Age: 57 Year
  Sex: Female
  Weight: 68.03 kg

DRUGS (6)
  1. LYRICA [Suspect]
     Indication: NERVOUS SYSTEM DISORDER
     Dosage: 75 MG, 2X/DAY
     Dates: start: 20121127
  2. LYRICA [Suspect]
     Indication: PARAESTHESIA
  3. GABAPENTIN [Suspect]
     Indication: NERVOUS SYSTEM DISORDER
     Dosage: 1200 MG, 1X/DAY
  4. GABAPENTIN [Suspect]
     Indication: PARAESTHESIA
     Dosage: 2400 MG, 1X/DAY (600 MG IN THE MORNING, 600 MG IN THE AFTERNOON AND 1200 MG AT NIGHT)
     Dates: end: 20121127
  5. SYMBICORT [Concomitant]
     Indication: ASTHMA
     Dosage: UNK (TWO PUFFS ),DAILY
  6. OXYBUTYNIN HYDROCHLORIDE [Concomitant]
     Indication: URINARY INCONTINENCE
     Dosage: UNK,DAILY

REACTIONS (2)
  - Drug ineffective [Unknown]
  - Muscle spasms [Not Recovered/Not Resolved]
